FAERS Safety Report 10550763 (Version 1)
Quarter: 2014Q4

REPORT INFORMATION
  Report Type: Spontaneous
  Country: DE (occurrence: None)
  Receive Date: 20141027
  Receipt Date: 20141027
  Transmission Date: 20150529
  Serious: Yes (Other)
  Sender: FDA-Public Use
  Company Number: 20142201

PATIENT
  Age: 46 Year
  Sex: Female

DRUGS (2)
  1. METEX PEN (METHOTREXATE INJECTION) [Suspect]
     Active Substance: METHOTREXATE
     Indication: PRODUCT USE ISSUE
     Dosage: 1X IN ONE WEEK
  2. METEX PEN (METHOTREXATE INJECTION) [Suspect]
     Active Substance: METHOTREXATE
     Indication: SCLERODERMA
     Dosage: 1X IN ONE WEEK

REACTIONS (2)
  - Rash erythematous [None]
  - Skin cancer [None]
